FAERS Safety Report 24191601 (Version 5)
Quarter: 2025Q1

REPORT INFORMATION
  Report Type: Spontaneous
  Country: JP (occurrence: JP)
  Receive Date: 20240808
  Receipt Date: 20250116
  Transmission Date: 20250408
  Serious: Yes (Hospitalization, Other)
  Sender: TAKEDA
  Company Number: JP-TAKEDA-2024TJP006959

PATIENT
  Age: 60 Year
  Sex: Female

DRUGS (4)
  1. TEDUGLUTIDE [Suspect]
     Active Substance: TEDUGLUTIDE
     Indication: Short-bowel syndrome
     Dosage: 0.21 MILLILITER, 3/WEEK
     Dates: start: 20240513
  2. TEDUGLUTIDE [Suspect]
     Active Substance: TEDUGLUTIDE
  3. TEDUGLUTIDE [Suspect]
     Active Substance: TEDUGLUTIDE
  4. TEDUGLUTIDE [Suspect]
     Active Substance: TEDUGLUTIDE

REACTIONS (8)
  - Weight decreased [Unknown]
  - Decreased appetite [Not Recovered/Not Resolved]
  - Device related sepsis [Recovered/Resolved]
  - Pyrexia [Recovered/Resolved]
  - Abdominal pain lower [Recovered/Resolved]
  - Therapeutic product effect incomplete [Unknown]
  - Off label use [Recovered/Resolved]
  - Inappropriate schedule of product administration [Recovered/Resolved]

NARRATIVE: CASE EVENT DATE: 20240513
